FAERS Safety Report 6656402-6 (Version None)
Quarter: 2010Q1

REPORT INFORMATION
  Report Type: 
  Country: None (occurrence: None)
  Receive Date: 20100329
  Receipt Date: 20100319
  Transmission Date: 20100710
  Serious: Yes (Hospitalization, Other)
  Sender: FDA-Public Use
  Company Number: US-ROCHE-675238

PATIENT
  Sex: Male
  Weight: 82.6 kg

DRUGS (2)
  1. ACCUTANE [Suspect]
     Indication: ACNE
     Route: 065
     Dates: start: 19990901, end: 19991201
  2. ACCUTANE [Suspect]
     Route: 065
     Dates: start: 20001101, end: 20010101

REACTIONS (7)
  - CHAPPED LIPS [None]
  - CHOLANGITIS SCLEROSING [None]
  - COLITIS [None]
  - CROHN'S DISEASE [None]
  - DEPRESSION [None]
  - EAR DISORDER [None]
  - INFLAMMATORY BOWEL DISEASE [None]
